FAERS Safety Report 9944242 (Version 1)
Quarter: 2014Q1

REPORT INFORMATION
  Report Type: Report from Study
  Country: US (occurrence: US)
  Receive Date: 20140303
  Receipt Date: 20140303
  Transmission Date: 20141002
  Serious: No
  Sender: FDA-Public Use
  Company Number: US-ABBVIE-13P-163-1051074-00

PATIENT
  Age: 53 Year
  Sex: Male
  Weight: 79 kg

DRUGS (3)
  1. HUMIRA [Suspect]
     Indication: PSORIATIC ARTHROPATHY
     Route: 058
     Dates: start: 20130114
  2. HUMIRA [Suspect]
     Indication: ANKYLOSING SPONDYLITIS
  3. LEVOXYL [Concomitant]
     Indication: HYPOTHYROIDISM

REACTIONS (13)
  - Fatigue [Recovered/Resolved]
  - Fatigue [Recovered/Resolved]
  - Asthenia [Recovered/Resolved]
  - Fatigue [Recovered/Resolved]
  - Fatigue [Recovered/Resolved]
  - Asthenia [Recovered/Resolved]
  - Chest discomfort [Recovered/Resolved]
  - Muscle strain [Unknown]
  - Chest discomfort [Not Recovered/Not Resolved]
  - Sinus operation [Not Recovered/Not Resolved]
  - Pain of skin [Not Recovered/Not Resolved]
  - Injection site pain [Not Recovered/Not Resolved]
  - Injection site haemorrhage [Not Recovered/Not Resolved]
